FAERS Safety Report 20936097 (Version 1)
Quarter: 2022Q2

REPORT INFORMATION
  Report Type: Spontaneous
  Country: US (occurrence: None)
  Receive Date: 20220609
  Receipt Date: 20220609
  Transmission Date: 20220720
  Serious: No
  Sender: FDA-Public Use
  Company Number: US-ROCHE-2853009

PATIENT
  Sex: Female

DRUGS (2)
  1. ACTEMRA [Suspect]
     Active Substance: TOCILIZUMAB
     Indication: Giant cell arteritis
     Dosage: FORM STRENGTH: ACT PEN 162MG/0.9M
     Route: 058
     Dates: start: 20210526
  2. ACTEMRA [Suspect]
     Active Substance: TOCILIZUMAB

REACTIONS (4)
  - Fatigue [Unknown]
  - Fluid retention [Unknown]
  - Alopecia [Unknown]
  - Acne [Unknown]
